FAERS Safety Report 8874092 (Version 1)
Quarter: 2012Q4

REPORT INFORMATION
  Report Type: 
  Country: US (occurrence: US)
  Receive Date: 20121023
  Receipt Date: 20121023
  Transmission Date: 20130627
  Serious: Yes (Death)
  Sender: FDA-Public Use
  Company Number: US-ROCHE-1130654

PATIENT
  Age: 76 Year
  Sex: Male
  Weight: 78.09 kg

DRUGS (3)
  1. RITUXAN [Suspect]
     Indication: WALDENSTROM^S MACROGLOBULINAEMIA
     Route: 065
  2. RITUXAN [Suspect]
     Route: 065
     Dates: end: 19991021
  3. LOZOL [Concomitant]

REACTIONS (4)
  - Death [Fatal]
  - Hypersensitivity [Unknown]
  - Pain [Unknown]
  - Upper respiratory tract infection [Unknown]
